FAERS Safety Report 7622066-8 (Version None)
Quarter: 2011Q3

REPORT INFORMATION
  Report Type: 
  Country: None (occurrence: None)
  Receive Date: 20110720
  Receipt Date: 20101116
  Transmission Date: 20111222
  Serious: Yes (Hospitalization, Other)
  Sender: FDA-Public Use
  Company Number: US-BAYER-201038339NA

PATIENT
  Age: 48 Year
  Sex: Female
  Weight: 63.039 kg

DRUGS (6)
  1. DROSPIRENONE AND ETHINYL ESTRADIOL [Suspect]
     Indication: ACNE
  2. YAZ [Suspect]
     Indication: ACNE
  3. COREG [Concomitant]
  4. DIGOXIN [Concomitant]
  5. YASMIN [Suspect]
     Indication: ACNE
     Dosage: UNK
     Dates: start: 20050111, end: 20050101
  6. DIURETICS [Concomitant]

REACTIONS (6)
  - DYSPNOEA [None]
  - HEART RATE IRREGULAR [None]
  - CARDIOMYOPATHY [None]
  - VENTRICULAR EXTRASYSTOLES [None]
  - CHEST PAIN [None]
  - EJECTION FRACTION DECREASED [None]
